FAERS Safety Report 24349035 (Version 1)
Quarter: 2024Q3

REPORT INFORMATION
  Report Type: Spontaneous
  Country: GB (occurrence: GB)
  Receive Date: 20240923
  Receipt Date: 20240923
  Transmission Date: 20241017
  Serious: Yes (Life-Threatening, Hospitalization, Other)
  Sender: AUROBINDO
  Company Number: GB-MHRA-31829428

PATIENT
  Age: 17 Year
  Sex: Female

DRUGS (1)
  1. LAMOTRIGINE [Suspect]
     Active Substance: LAMOTRIGINE
     Indication: Product used for unknown indication
     Dosage: 25 MILLIGRAM (DOSE TO INCREASE TO 50MG ON DAY 14)
     Route: 065
     Dates: start: 20211115, end: 20211129

REACTIONS (17)
  - Stevens-Johnson syndrome [Recovering/Resolving]
  - Toxic epidermal necrolysis [Recovering/Resolving]
  - Sepsis [Unknown]
  - Skin exfoliation [Unknown]
  - Blister [Unknown]
  - Malaise [Unknown]
  - Pain [Unknown]
  - Blindness unilateral [Not Recovered/Not Resolved]
  - Onycholysis [Unknown]
  - Lip swelling [Unknown]
  - Ocular hyperaemia [Unknown]
  - Vision blurred [Not Recovered/Not Resolved]
  - Lip dry [Unknown]
  - Mouth ulceration [Unknown]
  - Eye pruritus [Unknown]
  - Eye pain [Unknown]
  - Rash [Unknown]

NARRATIVE: CASE EVENT DATE: 20211123
